FAERS Safety Report 5844135-5 (Version None)
Quarter: 2008Q3

REPORT INFORMATION
  Report Type: 
  Country: None (occurrence: None)
  Receive Date: 20080813
  Receipt Date: 20080804
  Transmission Date: 20090109
  Serious: Yes (Hospitalization)
  Sender: FDA-Public Use
  Company Number: FR-WYE-G01955108

PATIENT
  Sex: Female

DRUGS (15)
  1. EFFEXOR [Suspect]
     Indication: ANXIETY
     Route: 048
     Dates: start: 20080602, end: 20080612
  2. SPIRONOLACTONE [Suspect]
     Indication: HYPERTENSION
     Route: 048
     Dates: start: 20080516, end: 20080613
  3. PARIET [Suspect]
     Route: 048
     Dates: start: 20070101
  4. AMIODARONE HCL [Concomitant]
     Indication: ATRIAL FIBRILLATION
     Route: 048
     Dates: start: 20070101, end: 20080612
  5. TRAMADOL HCL [Concomitant]
     Indication: PAIN
     Route: 048
     Dates: start: 20080513, end: 20080613
  6. ZANIDIP [Concomitant]
     Indication: HYPERTENSION
     Route: 048
     Dates: start: 20070101
  7. VOGALENE [Concomitant]
     Dosage: UNKNOWN
     Route: 048
     Dates: end: 20080606
  8. PREVISCAN [Concomitant]
     Route: 048
  9. TANAKAN [Concomitant]
     Dosage: UNKNOWN
  10. DESLORATADINE [Concomitant]
     Route: 048
  11. LACTULOSE [Concomitant]
     Dosage: UNKNOWN
     Dates: end: 20080606
  12. CETORNAN [Concomitant]
     Dosage: UNKNOWN
     Route: 048
     Dates: start: 20080609, end: 20080613
  13. ANAUSIN [Concomitant]
     Dosage: UNKNOWN
     Route: 048
     Dates: start: 20080606, end: 20080613
  14. SPAGULAX [Concomitant]
     Dosage: UNKNOWN
     Route: 048
     Dates: start: 20080606, end: 20080613
  15. LOSARTAN POTASSIUM AND HYDROCHLOROTHIAZIDE [Suspect]
     Indication: HYPERTENSION
     Route: 048
     Dates: start: 20070101, end: 20080613

REACTIONS (14)
  - ACTIVITIES OF DAILY LIVING IMPAIRED [None]
  - ASTHENIA [None]
  - CONSTIPATION [None]
  - FALL [None]
  - GENERAL PHYSICAL HEALTH DETERIORATION [None]
  - HAEMATOMA [None]
  - HYPERKALAEMIA [None]
  - HYPONATRAEMIA [None]
  - INTERMITTENT CLAUDICATION [None]
  - PRESYNCOPE [None]
  - SINOATRIAL BLOCK [None]
  - SINUS BRADYCARDIA [None]
  - VERTIGO [None]
  - VESTIBULAR DISORDER [None]
